FAERS Safety Report 15139700 (Version 3)
Quarter: 2018Q3

REPORT INFORMATION
  Report Type: Spontaneous
  Country: US (occurrence: US)
  Receive Date: 20180713
  Receipt Date: 20180828
  Transmission Date: 20181010
  Serious: Yes (Hospitalization, Other)
  Sender: FDA-Public Use
  Company Number: US-ELI_LILLY_AND_COMPANY-US201807003960

PATIENT
  Age: 66 Year
  Sex: Female

DRUGS (3)
  1. NOVOLOG [Concomitant]
     Active Substance: INSULIN ASPART
     Indication: PRODUCT USED FOR UNKNOWN INDICATION
     Dosage: UNK
  2. TRESIBA [Concomitant]
     Active Substance: INSULIN DEGLUDEC
     Indication: PRODUCT USED FOR UNKNOWN INDICATION
     Dosage: UNK
  3. TRULICITY [Suspect]
     Active Substance: DULAGLUTIDE
     Indication: DIABETES MELLITUS
     Dosage: 0.75 MG, WEEKLY (1/W)
     Route: 058
     Dates: start: 201804

REACTIONS (23)
  - Neck injury [Recovering/Resolving]
  - Road traffic accident [Unknown]
  - Eye disorder [Unknown]
  - Accidental underdose [Unknown]
  - Drug dose omission [Unknown]
  - General physical health deterioration [Not Recovered/Not Resolved]
  - Fracture [Unknown]
  - Limb discomfort [Unknown]
  - Crying [Unknown]
  - Muscular weakness [Unknown]
  - Memory impairment [Not Recovered/Not Resolved]
  - Blood glucose increased [Not Recovered/Not Resolved]
  - Stress [Not Recovered/Not Resolved]
  - Injection site pain [Unknown]
  - Mobility decreased [Not Recovered/Not Resolved]
  - Underdose [Unknown]
  - Blood glucose decreased [Recovered/Resolved]
  - Deafness [Unknown]
  - Mass [Not Recovered/Not Resolved]
  - Injection site indentation [Unknown]
  - Depression [Unknown]
  - Back pain [Not Recovered/Not Resolved]
  - Dry eye [Not Recovered/Not Resolved]

NARRATIVE: CASE EVENT DATE: 20180719
